FAERS Safety Report 8363353-8 (Version None)
Quarter: 2012Q1

REPORT INFORMATION
  Report Type: 
  Country: None (occurrence: None)
  Receive Date: 20120323
  Receipt Date: 20110517
  Transmission Date: 20120608
  Serious: Yes (Other)
  Sender: FDA-Public Use
  Company Number: 163-21880-11052301

PATIENT
  Age: 76 Year
  Sex: Female
  Weight: 74.5 kg

DRUGS (8)
  1. PROCHLORPERAZINE(PROCHLORPERAZINE)(UNKNOWN) [Concomitant]
  2. GABAPENTIN [Concomitant]
  3. REVLIMID [Suspect]
     Indication: MYELODYSPLASTIC SYNDROME
     Dosage: 5 MG, 1 IN 1 D, PO
     Route: 048
     Dates: start: 20091001, end: 20100801
  4. LEVOTHROID(LEVOTHYROXINE SODIUM)(UNKNOWN) [Concomitant]
  5. SIMVASTATIN [Concomitant]
  6. ALENDRONATE SODIUM [Concomitant]
  7. ALBUTEROL(SALBUTAMOL)(UNKNOWN) [Concomitant]
  8. OMEPRAZOLE [Concomitant]

REACTIONS (1)
  - NEUROPATHY PERIPHERAL [None]
